FAERS Safety Report 4871997-0 (Version None)
Quarter: 2005Q4

REPORT INFORMATION
  Report Type: 
  Country: None (occurrence: None)
  Receive Date: 20051230
  Receipt Date: 20051215
  Transmission Date: 20060501
  Serious: Yes (Hospitalization)
  Sender: FDA-Public Use
  Company Number: US-2005-026974

PATIENT
  Age: 58 Year
  Sex: Male
  Weight: 90 kg

DRUGS (10)
  1. LEUKINE [Suspect]
     Indication: NEUTROPENIA
     Dosage: 500 UG, 1 DOSE, SUBCUTANEOUS
     Route: 058
     Dates: start: 20051209, end: 20051209
  2. ASPIRIN [Concomitant]
  3. HYDROCHLOROTHIAZIDE [Concomitant]
  4. CRESTOR /NET/ (ROSUVASTATIN CALCIUM) [Concomitant]
  5. ISOSORBIDE (ISOSORBIDE) [Concomitant]
  6. SPIRIVA [Concomitant]
  7. ADVAIR DISKUS 100/50 [Concomitant]
  8. NEXIUM [Concomitant]
  9. DIGOXIN [Concomitant]
  10. COREG [Concomitant]

REACTIONS (10)
  - BLOOD PH INCREASED [None]
  - BRAIN NATRIURETIC PEPTIDE INCREASED [None]
  - DILATATION VENTRICULAR [None]
  - DIZZINESS [None]
  - EJECTION FRACTION DECREASED [None]
  - ISCHAEMIC CARDIOMYOPATHY [None]
  - LUNG INFILTRATION [None]
  - NAUSEA [None]
  - NON-CARDIOGENIC PULMONARY OEDEMA [None]
  - PLEURAL EFFUSION [None]
